FAERS Safety Report 25744964 (Version 1)
Quarter: 2025Q3

REPORT INFORMATION
  Report Type: Spontaneous
  Country: US (occurrence: US)
  Receive Date: 20250901
  Receipt Date: 20250901
  Transmission Date: 20251021
  Serious: No
  Sender: CIPLA
  Company Number: US-CIPLA LTD.-2025US10933

PATIENT

DRUGS (1)
  1. DICLOFENAC [Suspect]
     Active Substance: DICLOFENAC
     Indication: Product used for unknown indication
     Route: 061

REACTIONS (2)
  - Perfume sensitivity [Unknown]
  - Product odour abnormal [Unknown]
